FAERS Safety Report 9351923 (Version 2)
Quarter: 2013Q3

REPORT INFORMATION
  Report Type: Spontaneous
  Country: US (occurrence: US)
  Receive Date: 20130617
  Receipt Date: 20130716
  Transmission Date: 20140515
  Serious: Yes (Other)
  Sender: FDA-Public Use
  Company Number: US-UCBSA-088426

PATIENT
  Age: 66 Year
  Sex: Male

DRUGS (9)
  1. CIMZIA [Suspect]
     Indication: CROHN^S DISEASE
     Dates: start: 200808, end: 201210
  2. XYZAL [Concomitant]
     Dosage: 5 MG AS NEEDED
  3. ENTOCORT EC [Concomitant]
  4. CREON [Concomitant]
     Dosage: THRICE EVERY DAY(UNSPECIFIED DOSE)
  5. ACYCLOVIR [Concomitant]
     Indication: CYTOMEGALOVIRUS INFECTION
     Dosage: ONCE EVERY DAY(UNSPECIFIED DATE)
  6. LOMOTIL [Concomitant]
     Dosage: (UNSPECIFIED DOSE)4- 5 TIMES A DAY, WHEN NEEDED
  7. BONIVA [Concomitant]
  8. MULTIVITAMINS [Concomitant]
     Dosage: UNSPECIFIED DOSE
  9. PROPACET [Concomitant]

REACTIONS (3)
  - Cytomegalovirus infection [Recovering/Resolving]
  - Epstein-Barr virus infection [Recovering/Resolving]
  - Fungal infection [Recovered/Resolved]
